FAERS Safety Report 19140524 (Version 3)
Quarter: 2021Q2

REPORT INFORMATION
  Report Type: Spontaneous
  Country: IT (occurrence: IT)
  Receive Date: 20210415
  Receipt Date: 20210510
  Transmission Date: 20210717
  Serious: Yes (Hospitalization)
  Sender: FDA-Public Use
  Company Number: IT-PFIZER INC-2021398201

PATIENT
  Age: 24 Year
  Sex: Female

DRUGS (2)
  1. HALDOL [Suspect]
     Active Substance: HALOPERIDOL
     Indication: MIXED ANXIETY AND DEPRESSIVE DISORDER
     Dosage: 60 ML, TOTAL
     Route: 048
     Dates: start: 20210405, end: 20210405
  2. EFFEXOR XR [Suspect]
     Active Substance: VENLAFAXINE HYDROCHLORIDE
     Indication: DEPRESSION
     Dosage: 3000 MG, TOTAL
     Route: 048
     Dates: start: 20210405, end: 20210405

REACTIONS (5)
  - Toxicity to various agents [Recovering/Resolving]
  - Intentional overdose [Unknown]
  - Intentional self-injury [Recovering/Resolving]
  - Tonic convulsion [Recovering/Resolving]
  - Drug abuse [Recovering/Resolving]

NARRATIVE: CASE EVENT DATE: 20210405
